FAERS Safety Report 8481287-5 (Version None)
Quarter: 2012Q3

REPORT INFORMATION
  Report Type: 
  Country: None (occurrence: None)
  Receive Date: 20120702
  Receipt Date: 20120627
  Transmission Date: 20120928
  Serious: Yes (Hospitalization)
  Sender: FDA-Public Use
  Company Number: CO-PFIZER INC-2012155908

PATIENT
  Age: 62 Year
  Sex: Female

DRUGS (6)
  1. ATROFITUM [Concomitant]
     Indication: ARTHRITIS
     Dosage: 480 MG EVERY DAY
     Route: 048
  2. METOPROLOL SUCCINATE [Concomitant]
     Indication: HYPERTENSION
     Dosage: UNK
  3. ASPIRIN [Concomitant]
     Dosage: 50 MG EVERY DAY
  4. LIPITOR [Suspect]
     Indication: BLOOD CHOLESTEROL ABNORMAL
     Dosage: 40 MG, 1X/DAY
     Route: 048
     Dates: start: 20100101
  5. PANTOPRAZOLE [Concomitant]
     Dosage: 20 MG EVERY DAY
  6. CLOPIDOGREL [Concomitant]
     Dosage: 75 MG EVERY DAY

REACTIONS (1)
  - INFARCTION [None]
